FAERS Safety Report 10248351 (Version 1)
Quarter: 2014Q2

REPORT INFORMATION
  Report Type: Spontaneous
  Country: GB (occurrence: GB)
  Receive Date: 20140620
  Receipt Date: 20140620
  Transmission Date: 20141212
  Serious: Yes (Other)
  Sender: FDA-Public Use
  Company Number: GB-009507513-1406GBR006902

PATIENT
  Age: 55 Year
  Sex: Female
  Weight: 76 kg

DRUGS (8)
  1. MIRTAZAPINE [Suspect]
     Indication: DEPRESSION
     Dosage: 15 MG, UNK
     Route: 048
     Dates: start: 20140130, end: 20140213
  2. MIRTAZAPINE [Suspect]
     Dosage: 30 MG, UNK
     Route: 048
     Dates: start: 20140213, end: 20140327
  3. BENDROFLUMETHIAZIDE [Concomitant]
  4. DIAZEPAM [Concomitant]
  5. PAROXETINE HYDROCHLORIDE [Concomitant]
     Dosage: DOSE DECREASED 10MG WHEN MIRTAZAPINE 15MG WAS STARTED. DISCONTINUED.
     Dates: start: 2000
  6. SERETIDE [Concomitant]
  7. RAMIPRIL [Concomitant]
  8. VENTOLIN (ALBUTEROL) [Concomitant]
     Route: 055

REACTIONS (3)
  - Tachycardia [Recovered/Resolved]
  - Dyspnoea exertional [Unknown]
  - Palpitations [Unknown]
